FAERS Safety Report 5393321-X (Version None)
Quarter: 2007Q3

REPORT INFORMATION
  Report Type: 
  Country: None (occurrence: None)
  Receive Date: 20070723
  Receipt Date: 20070718
  Transmission Date: 20080115
  Serious: Yes (Death, Life-Threatening, Hospitalization)
  Sender: FDA-Public Use
  Company Number: PHBS2007JP09644

PATIENT
  Age: 65 Year
  Sex: Female

DRUGS (4)
  1. NEORAL [Suspect]
     Indication: MYELODYSPLASTIC SYNDROME
     Dosage: 6 MG/KG/DAY
     Route: 065
     Dates: start: 20061101, end: 20061101
  2. ATGAM [Concomitant]
     Route: 065
  3. PREDNISOLONE [Concomitant]
     Route: 065
  4. NEUPOGEN [Concomitant]
     Dosage: UNK, UNK
     Route: 065

REACTIONS (3)
  - CEREBRAL INFARCTION [None]
  - THROMBOTIC MICROANGIOPATHY [None]
  - TRANSFUSION-RELATED ACUTE LUNG INJURY [None]
